FAERS Safety Report 19403966 (Version 1)
Quarter: 2021Q2

REPORT INFORMATION
  Report Type: Spontaneous
  Country: US (occurrence: US)
  Receive Date: 20210610
  Receipt Date: 20210610
  Transmission Date: 20210717
  Serious: Yes (Hospitalization)
  Sender: FDA-Public Use
  Company Number: None

PATIENT
  Age: 79 Year
  Sex: Female

DRUGS (6)
  1. ESOMEPRA MAG [Concomitant]
  2. METOPROL SUC ER [Concomitant]
     Active Substance: METOPROLOL SUCCINATE
  3. VITAMIN D [Concomitant]
     Active Substance: VITAMIN D NOS
  4. ESBRIET [Suspect]
     Active Substance: PIRFENIDONE
     Indication: IDIOPATHIC PULMONARY FIBROSIS
     Route: 048
     Dates: start: 20210421, end: 20210608
  5. PREDNISONE. [Concomitant]
     Active Substance: PREDNISONE
  6. MAGNESIUM?OX [Concomitant]

REACTIONS (1)
  - Respiratory disorder [None]

NARRATIVE: CASE EVENT DATE: 20210608
